FAERS Safety Report 18952067 (Version 2)
Quarter: 2021Q1

REPORT INFORMATION
  Report Type: Spontaneous
  Country: US (occurrence: US)
  Receive Date: 20210301
  Receipt Date: 20210311
  Transmission Date: 20210420
  Serious: Yes (Other)
  Sender: FDA-Public Use
  Company Number: US-ORGANON-2012USA009746

PATIENT
  Age: 32 Year
  Sex: Female
  Weight: 74.3 kg

DRUGS (1)
  1. NEXPLANON [Suspect]
     Active Substance: ETONOGESTREL
     Indication: CONTRACEPTION
     Dosage: 1 IMPLANT FOR 3 YEARS, IN THE LEFT ARM
     Route: 059
     Dates: start: 201712, end: 20210122

REACTIONS (8)
  - Complication of device removal [Recovered/Resolved]
  - Incorrect product administration duration [Unknown]
  - Device issue [Recovered/Resolved]
  - Complication associated with device [Recovered/Resolved]
  - Device dislocation [Recovered/Resolved]
  - Complication of device removal [Recovered/Resolved]
  - General anaesthesia [Unknown]
  - Surgery [Unknown]

NARRATIVE: CASE EVENT DATE: 202012
